FAERS Safety Report 14077300 (Version 1)
Quarter: 2017Q4

REPORT INFORMATION
  Report Type: Spontaneous
  Country: US (occurrence: US)
  Receive Date: 20171012
  Receipt Date: 20171012
  Transmission Date: 20180321
  Serious: No
  Sender: FDA-Public Use
  Company Number: US-ENDO PHARMACEUTICALS INC-2017-002485

PATIENT
  Sex: Female

DRUGS (1)
  1. BACLOFEN TABLETS 20MG [Suspect]
     Active Substance: BACLOFEN
     Indication: MULTIPLE SCLEROSIS
     Dosage: 20 MG, UNKNOWN
     Route: 048
     Dates: start: 2000

REACTIONS (3)
  - Product physical issue [Unknown]
  - Muscle spasms [Not Recovered/Not Resolved]
  - Product taste abnormal [Unknown]
